FAERS Safety Report 25154243 (Version 1)
Quarter: 2025Q2

REPORT INFORMATION
  Report Type: Spontaneous
  Country: US (occurrence: US)
  Receive Date: 20250403
  Receipt Date: 20250403
  Transmission Date: 20250716
  Serious: Yes (Other)
  Sender: ABBVIE
  Company Number: US-ABBVIE-6203065

PATIENT
  Age: 59 Year
  Sex: Female

DRUGS (1)
  1. SKYRIZI [Suspect]
     Active Substance: RISANKIZUMAB-RZAA
     Indication: Psoriasis
     Route: 058

REACTIONS (11)
  - Patella fracture [Unknown]
  - Limb operation [Unknown]
  - Limb operation [Unknown]
  - Ankle fracture [Unknown]
  - Lower limb fracture [Unknown]
  - Malaise [Unknown]
  - Cholecystectomy [Unknown]
  - Brain neoplasm [Unknown]
  - Spinal operation [Unknown]
  - Neck surgery [Unknown]
  - Pain [Unknown]

NARRATIVE: CASE EVENT DATE: 20240101
